FAERS Safety Report 5414274-1 (Version None)
Quarter: 2007Q3

REPORT INFORMATION
  Report Type: 
  Country: None (occurrence: None)
  Receive Date: 20070713
  Receipt Date: 20070504
  Transmission Date: 20080115
  Serious: Yes (Other)
  Sender: FDA-Public Use
  Company Number: US-JNJFOC-20061201733

PATIENT
  Age: 32 Year
  Sex: Female
  Weight: 90.7194 kg

DRUGS (7)
  1. ORTHO EVRA [Suspect]
     Indication: CONTRACEPTION
     Dosage: TRANSDERMAL
     Route: 062
     Dates: start: 20060401, end: 20060605
  2. TRIAMCINOLONE [Concomitant]
  3. ALPRAZOLAM [Concomitant]
  4. CELEBREX [Concomitant]
  5. LEVOTHYROXINE SODIUM [Concomitant]
  6. PHENTERMINE HCL (PHENTERMINE) [Concomitant]
  7. BENZOYL (BENZOYL PEROXIDE) [Concomitant]

REACTIONS (1)
  - DEEP VEIN THROMBOSIS [None]
